FAERS Safety Report 25734529 (Version 1)
Quarter: 2025Q3

REPORT INFORMATION
  Report Type: Report from Study
  Country: EU (occurrence: EU)
  Receive Date: 20250828
  Receipt Date: 20250828
  Transmission Date: 20251021
  Serious: Yes (Hospitalization, Other)
  Sender: RANBAXY
  Company Number: EU-SUN PHARMACEUTICAL INDUSTRIES INC-2025R1-524809

PATIENT
  Age: 58 Year
  Sex: Male

DRUGS (3)
  1. QUINIDINE [Suspect]
     Active Substance: QUINIDINE
     Indication: Ventricular tachycardia
     Route: 065
  2. QUINIDINE [Suspect]
     Active Substance: QUINIDINE
     Indication: Arrhythmic storm
  3. QUINIDINE [Suspect]
     Active Substance: QUINIDINE
     Indication: Ventricular extrasystoles

REACTIONS (1)
  - Therapy non-responder [Unknown]
